FAERS Safety Report 6268046-9 (Version None)
Quarter: 2009Q3

REPORT INFORMATION
  Report Type: 
  Country: None (occurrence: None)
  Receive Date: 20090713
  Receipt Date: 20090630
  Transmission Date: 20100115
  Serious: No
  Sender: FDA-Public Use
  Company Number: 006956

PATIENT
  Age: 7 Year
  Sex: Female

DRUGS (2)
  1. BUSULFEX [Suspect]
     Indication: STEM CELL TRANSPLANT
     Dosage: 4 MG/KG, QD,
     Dates: start: 20040101, end: 20040101
  2. CYCLOPHOSPHAMIDE [Concomitant]

REACTIONS (2)
  - ALOPECIA [None]
  - GRAFT VERSUS HOST DISEASE [None]
